FAERS Safety Report 25038980 (Version 2)
Quarter: 2025Q2

REPORT INFORMATION
  Report Type: Spontaneous
  Country: CA (occurrence: CA)
  Receive Date: 20250305
  Receipt Date: 20250408
  Transmission Date: 20250717
  Serious: Yes (Other)
  Sender: ALEXION PHARMACEUTICALS
  Company Number: CA-AstraZeneca-CH-00818600A

PATIENT
  Age: 21 Year
  Weight: 69 kg

DRUGS (1)
  1. SAPHNELO [Suspect]
     Active Substance: ANIFROLUMAB-FNIA
     Dosage: UNK, QMONTH

REACTIONS (2)
  - Lupus nephritis [Recovered/Resolved]
  - Molluscum contagiosum [Recovered/Resolved]
